FAERS Safety Report 8712467 (Version 2)
Quarter: 2012Q4

REPORT INFORMATION
  Report Type: 
  Country: IL (occurrence: IL)
  Receive Date: 20120808
  Receipt Date: 20120905
  Transmission Date: 20130627
  Serious: Yes (Hospitalization)
  Sender: FDA-Public Use
  Company Number: PHHO2012IL011418

PATIENT
  Age: 51 Year
  Sex: Female
  Weight: 52.5 kg

DRUGS (5)
  1. AFINITOR [Suspect]
     Indication: BREAST CANCER METASTATIC
     Dosage: 10 mg/day
     Dates: start: 20111009, end: 20120730
  2. CGS 20267 [Suspect]
     Indication: BREAST CANCER METASTATIC
     Dosage: 2.5 mg/day
     Dates: start: 20111009, end: 20120805
  3. ZOMETA [Concomitant]
     Indication: BREAST CANCER METASTATIC
     Dosage: 4 mg/5 ml
     Dates: start: 20111009, end: 20120708
  4. ADRENALINE [Concomitant]
     Indication: GASTRITIS
     Dosage: UNK
     Dates: start: 20120701
  5. NEXIUM [Concomitant]
     Dosage: 40 mg, UNK
     Dates: start: 20120601

REACTIONS (2)
  - Gastrointestinal angiodysplasia haemorrhagic [Recovering/Resolving]
  - Anaemia [Recovered/Resolved]
